FAERS Safety Report 23524621 (Version 4)
Quarter: 2024Q2

REPORT INFORMATION
  Report Type: Spontaneous
  Country: US (occurrence: US)
  Receive Date: 20240215
  Receipt Date: 20240521
  Transmission Date: 20240716
  Serious: Yes (Other)
  Sender: FDA-Public Use
  Company Number: US-ABBVIE-5637360

PATIENT
  Age: 58 Year
  Sex: Male
  Weight: 90 kg

DRUGS (9)
  1. BOTOX [Suspect]
     Active Substance: ONABOTULINUMTOXINA
     Indication: Muscle spasticity
     Dosage: TIME INTERVAL: AS NECESSARY: DOSE: 200 UNITS
     Route: 030
     Dates: start: 2024, end: 2024
  2. DEPAKOTE ER [Concomitant]
     Active Substance: DIVALPROEX SODIUM
     Indication: Product used for unknown indication
     Dosage: STRENGTH: 500 MG?TAKE 1 TABLET FOR 30 DAYS
     Route: 048
     Dates: start: 20240328
  3. ASPIRIN [Concomitant]
     Active Substance: ASPIRIN
     Indication: Product used for unknown indication
     Dosage: STRENGTH: 81 MG?DELAYED RELEASE
     Route: 048
  4. INDOMETHACIN [Concomitant]
     Active Substance: INDOMETHACIN
     Indication: Headache
     Dosage: TIME INTERVAL: AS NECESSARY: STRENGTH: 50 MG, TAKE ONE CAPSULE EVERY 12 HOURS FOR 30 DAYS
     Route: 048
     Dates: start: 20240328
  5. BACLOFEN [Concomitant]
     Active Substance: BACLOFEN
     Indication: Product used for unknown indication
     Dosage: TIME INTERVAL: 0.33333333 DAYS: STRENGTH: 20 MG?TAKE 1 TABLET FOR 90 DAYS
     Route: 048
     Dates: start: 20240328
  6. LISINOPRIL [Concomitant]
     Active Substance: LISINOPRIL
     Indication: Product used for unknown indication
     Dosage: STRENGTH: 20 MG
     Route: 048
  7. TYLENOL [Concomitant]
     Active Substance: ACETAMINOPHEN
     Indication: Product used for unknown indication
     Dosage: TIME INTERVAL: AS NECESSARY: STRENGTH: 325 MG?TAKE 2 TABLETS (650 MG) EVERY 6 HOURS
     Route: 048
  8. ATORVASTATIN [Concomitant]
     Active Substance: ATORVASTATIN
     Indication: Product used for unknown indication
     Dosage: STRENGTH: 80 MG?TAKE 1 TABLET
     Route: 048
  9. MELATONIN [Concomitant]
     Active Substance: MELATONIN
     Indication: Product used for unknown indication
     Dosage: STRENGTH: 5 MG, ?TAKE 1 CAPSULE
     Route: 048

REACTIONS (6)
  - Seizure [Recovering/Resolving]
  - Hypoaesthesia [Unknown]
  - Dizziness [Recovering/Resolving]
  - Syncope [Recovering/Resolving]
  - Dizziness [Unknown]
  - Urinary incontinence [Recovering/Resolving]

NARRATIVE: CASE EVENT DATE: 20240101
